FAERS Safety Report 15466051 (Version 1)
Quarter: 2018Q4

REPORT INFORMATION
  Report Type: Spontaneous
  Country: US (occurrence: US)
  Receive Date: 20181004
  Receipt Date: 20181004
  Transmission Date: 20190204
  Serious: No
  Sender: FDA-Public Use
  Company Number: US-GALDERMA-US18003321

PATIENT
  Age: 19 Year
  Sex: Male

DRUGS (4)
  1. MIRVASO [Suspect]
     Active Substance: BRIMONIDINE TARTRATE
     Indication: ERYTHEMA
     Dosage: 0.33%
     Route: 061
     Dates: start: 20180224, end: 20180301
  2. CALCITRIOL (CALCITRIOL) [Suspect]
     Active Substance: CALCITRIOL
     Indication: PRODUCT USED FOR UNKNOWN INDICATION
     Route: 061
  3. COPPERTONE OIL FREE FACES SPF 15 [Concomitant]
     Active Substance: AVOBENZONE\HOMOSALATE\OCTISALATE\OCTOCRYLENE
     Indication: PROPHYLAXIS AGAINST SOLAR RADIATION
  4. ACCUTANE (ISOTRETINOIN) [Concomitant]
     Indication: ACNE

REACTIONS (5)
  - Skin disorder [Recovered/Resolved]
  - Hypersensitivity [Recovered/Resolved]
  - Skin burning sensation [Not Recovered/Not Resolved]
  - Erythema [Not Recovered/Not Resolved]
  - Pallor [Unknown]

NARRATIVE: CASE EVENT DATE: 20180228
